FAERS Safety Report 10236640 (Version 4)
Quarter: 2014Q3

REPORT INFORMATION
  Report Type: Spontaneous
  Country: SI (occurrence: SI)
  Receive Date: 20140613
  Receipt Date: 20140711
  Transmission Date: 20150326
  Serious: Yes (Hospitalization, Disabling)
  Sender: FDA-Public Use
  Company Number: PHHY2014SI067492

PATIENT
  Sex: Female
  Weight: 112 kg

DRUGS (5)
  1. EMOZUL [Concomitant]
     Dosage: 1 DF, UNK
     Route: 048
  2. ADALAT [Concomitant]
     Active Substance: NIFEDIPINE
     Dosage: 1 DF, UNK
  3. LETIZEN [Concomitant]
     Dosage: 1 TBL/12 H
  4. CEFTRIAXONE. [Suspect]
     Active Substance: CEFTRIAXONE
     Indication: ACRODERMATITIS CHRONICA ATROPHICANS
     Dosage: 2 G, UNK
     Route: 042
     Dates: start: 20140225, end: 20140319
  5. TAVEGYL [Concomitant]
     Active Substance: CLEMASTINE FUMARATE
     Dosage: 1 AMPOULE WHEN NEEDED

REACTIONS (8)
  - Transaminases increased [Recovered/Resolved]
  - Pyrexia [Recovered/Resolved]
  - Cholelithiasis [Unknown]
  - Headache [Unknown]
  - Pancytopenia [Recovered/Resolved]
  - Cough [Unknown]
  - Nasopharyngitis [Unknown]
  - Liver disorder [Recovered/Resolved]

NARRATIVE: CASE EVENT DATE: 20140305
